FAERS Safety Report 19861495 (Version 3)
Quarter: 2021Q4

REPORT INFORMATION
  Report Type: Report from Study
  Country: US (occurrence: US)
  Receive Date: 20210920
  Receipt Date: 20211015
  Transmission Date: 20220303
  Serious: Yes (Hospitalization, Other)
  Sender: FDA-Public Use
  Company Number: NVSC2021US211727

PATIENT
  Sex: Female

DRUGS (8)
  1. ENTRESTO [Suspect]
     Active Substance: SACUBITRIL\VALSARTAN
     Indication: Cardiac failure
     Dosage: 100 MG, BID (49/51 MG)
     Route: 048
     Dates: start: 2018
  2. ENTRESTO [Suspect]
     Active Substance: SACUBITRIL\VALSARTAN
     Dosage: 50 MG (24/26 MG), QD
     Route: 048
  3. CODEINE [Suspect]
     Active Substance: CODEINE
     Indication: Product used for unknown indication
     Dosage: UNK
     Route: 065
  4. TYLENOL [Concomitant]
     Active Substance: ACETAMINOPHEN
     Indication: Product used for unknown indication
     Dosage: 2 DF, PRN (EVERY 8 HOURS)
     Route: 048
     Dates: start: 20210823
  5. ASPIRIN [Concomitant]
     Active Substance: ASPIRIN
     Indication: Product used for unknown indication
     Dosage: 01 MG, QD
     Route: 065
     Dates: start: 20180828
  6. LASIX [Concomitant]
     Active Substance: FUROSEMIDE
     Indication: Product used for unknown indication
     Dosage: 2 DF, QD
     Route: 048
     Dates: start: 20190628, end: 20210823
  7. CARDIZEM [Concomitant]
     Active Substance: DILTIAZEM HYDROCHLORIDE
     Indication: Product used for unknown indication
     Dosage: 1 DF (12 HROURS)
     Route: 048
     Dates: start: 20210823
  8. ATIVAN [Concomitant]
     Active Substance: LORAZEPAM
     Indication: Product used for unknown indication
     Dosage: 1 DF (EVERY AM)
     Route: 048

REACTIONS (17)
  - Tremor [Not Recovered/Not Resolved]
  - Muscular weakness [Not Recovered/Not Resolved]
  - Rheumatoid arthritis [Unknown]
  - Cerebral atrophy [Unknown]
  - Osteoarthritis [Unknown]
  - Coronary artery disease [Unknown]
  - Neuralgia [Unknown]
  - Anxiety [Unknown]
  - Stenosis [Unknown]
  - Radiculopathy [Unknown]
  - Lumbar radiculopathy [Unknown]
  - Arteriosclerosis [Unknown]
  - Spinal stenosis [Unknown]
  - Headache [Unknown]
  - Asthenia [Unknown]
  - Hypersensitivity [Unknown]
  - Incorrect dose administered [Unknown]
